FAERS Safety Report 24010447 (Version 7)
Quarter: 2024Q3

REPORT INFORMATION
  Report Type: Spontaneous
  Country: US (occurrence: US)
  Receive Date: 20240625
  Receipt Date: 20240926
  Transmission Date: 20241016
  Serious: Yes (Other)
  Sender: ASTELLAS
  Company Number: US-ASTELLAS-2024US017894

PATIENT
  Age: 76 Year
  Sex: Female

DRUGS (4)
  1. IZERVAY [Suspect]
     Active Substance: AVACINCAPTAD PEGOL SODIUM
     Indication: Dry age-related macular degeneration
     Dosage: UNK UNK, EVERY 5 WEEKS
     Dates: start: 20240404, end: 20240404
  2. IZERVAY [Suspect]
     Active Substance: AVACINCAPTAD PEGOL SODIUM
     Dosage: UNK UNK, EVERY 5 WEEKS
  3. IZERVAY [Suspect]
     Active Substance: AVACINCAPTAD PEGOL SODIUM
     Dosage: UNK UNK, EVERY 5 WEEKS
     Dates: start: 20240613, end: 20240613
  4. IZERVAY [Suspect]
     Active Substance: AVACINCAPTAD PEGOL SODIUM
     Dosage: UNK UNK, EVERY 5 WEEKS
     Dates: start: 20240725, end: 20240725

REACTIONS (5)
  - Ocular hyperaemia [Recovered/Resolved]
  - Skin cancer [Unknown]
  - Vitreous floaters [Recovered/Resolved]
  - Vitreous floaters [Unknown]
  - Melanocytic naevus [Unknown]

NARRATIVE: CASE EVENT DATE: 20240613
